FAERS Safety Report 11837479 (Version 1)
Quarter: 2015Q4

REPORT INFORMATION
  Report Type: Spontaneous
  Country: IT (occurrence: IT)
  Receive Date: 20151215
  Receipt Date: 20151215
  Transmission Date: 20160305
  Serious: Yes (Other)
  Sender: FDA-Public Use
  Company Number: PHHY2015IT163288

PATIENT
  Age: 76 Year
  Sex: Female

DRUGS (6)
  1. QUETIAPINE [Suspect]
     Active Substance: QUETIAPINE
     Indication: HALLUCINATION, VISUAL
     Dosage: 50 MG, QD
     Route: 065
  2. AMITRIPTYLINE HCL W/CHLORDIAZEPOXIDE [Suspect]
     Active Substance: AMITRIPTYLINE HYDROCHLORIDE\CHLORDIAZEPOXIDE
     Indication: ANXIETY
     Route: 065
  3. AMITRIPTYLINE HCL W/CHLORDIAZEPOXIDE [Suspect]
     Active Substance: AMITRIPTYLINE HYDROCHLORIDE\CHLORDIAZEPOXIDE
     Indication: DEPRESSIVE SYMPTOM
  4. PRAMIPEXOLE. [Suspect]
     Active Substance: PRAMIPEXOLE
     Indication: PARKINSON^S DISEASE
     Dosage: 1.05 MG, TID
     Route: 065
  5. LEVODOPA+BENSERAZIDE [Suspect]
     Active Substance: BENSERAZIDE\LEVODOPA
     Indication: PARKINSON^S DISEASE
     Route: 065
  6. LEVODOPA+CARBIDOPA [Suspect]
     Active Substance: CARBIDOPA\LEVODOPA
     Indication: PRODUCT USED FOR UNKNOWN INDICATION
     Route: 065

REACTIONS (3)
  - Drug effect decreased [Recovering/Resolving]
  - Dopamine dysregulation syndrome [Recovering/Resolving]
  - Cotard^s syndrome [Recovering/Resolving]

NARRATIVE: CASE EVENT DATE: 2006
